FAERS Safety Report 25392915 (Version 1)
Quarter: 2025Q2

REPORT INFORMATION
  Report Type: Report from Study
  Country: CA (occurrence: CA)
  Receive Date: 20250604
  Receipt Date: 20250604
  Transmission Date: 20250717
  Serious: Yes (Other)
  Sender: CELLTRION
  Company Number: CA-CELLTRION INC.-2025CA016907

PATIENT

DRUGS (3)
  1. USTEKINUMAB [Suspect]
     Active Substance: USTEKINUMAB
     Indication: Colitis ulcerative
     Route: 042
     Dates: start: 20250205
  2. USTEKINUMAB [Suspect]
     Active Substance: USTEKINUMAB
     Route: 042
     Dates: start: 20250205
  3. USTEKINUMAB [Suspect]
     Active Substance: USTEKINUMAB
     Route: 042
     Dates: start: 20250205, end: 20250205

REACTIONS (3)
  - Colitis ulcerative [Unknown]
  - Abnormal dreams [Unknown]
  - Intentional product use issue [Unknown]

NARRATIVE: CASE EVENT DATE: 20250305
